FAERS Safety Report 21248375 (Version 3)
Quarter: 2022Q4

REPORT INFORMATION
  Report Type: Other
  Country: US (occurrence: None)
  Receive Date: 20220824
  Receipt Date: 20221106
  Transmission Date: 20230113
  Serious: Yes (Hospitalization)
  Sender: FDA-Public Use
  Company Number: US-ROCHE-3165963

PATIENT
  Age: 67 Year
  Sex: Female

DRUGS (8)
  1. ACTEMRA [Suspect]
     Active Substance: TOCILIZUMAB
     Indication: Endophthalmitis
     Route: 058
  2. ACTEMRA [Suspect]
     Active Substance: TOCILIZUMAB
  3. ACTEMRA [Suspect]
     Active Substance: TOCILIZUMAB
     Indication: Eye inflammation
  4. ACTEMRA [Suspect]
     Active Substance: TOCILIZUMAB
  5. ACTEMRA [Suspect]
     Active Substance: TOCILIZUMAB
     Indication: Uveitis
  6. ACTEMRA [Suspect]
     Active Substance: TOCILIZUMAB
  7. ACTEMRA [Suspect]
     Active Substance: TOCILIZUMAB
     Indication: Scleritis
  8. ACTEMRA [Suspect]
     Active Substance: TOCILIZUMAB

REACTIONS (2)
  - Thrombosis [Unknown]
  - Off label use [Unknown]
